FAERS Safety Report 4423450-6 (Version None)
Quarter: 2004Q3

REPORT INFORMATION
  Report Type: 
  Country: None (occurrence: None)
  Receive Date: 20040806
  Receipt Date: 20040722
  Transmission Date: 20050211
  Serious: Yes (Other)
  Sender: FDA-Public Use
  Company Number: S04-ITA-03403-01

PATIENT
  Age: 76 Year
  Sex: Female

DRUGS (4)
  1. ELOPRAM (CITALOPRAM) [Suspect]
     Dosage: 40 MG QD PO
     Route: 048
     Dates: start: 20031124, end: 20040617
  2. ASPIRIN [Concomitant]
  3. CIBACEN (BENAZEPIL HYDROCHLORIDE) [Concomitant]
  4. CIBADREX ^CIBA-GEIGY^ [Concomitant]

REACTIONS (2)
  - HAEMATURIA [None]
  - URINARY BLADDER HAEMORRHAGE [None]
